FAERS Safety Report 9898750 (Version 2)
Quarter: 2014Q1

REPORT INFORMATION
  Report Type: Spontaneous
  Country: US (occurrence: US)
  Receive Date: 20140214
  Receipt Date: 20140311
  Transmission Date: 20141002
  Serious: Yes (Life-Threatening, Hospitalization, Other)
  Sender: FDA-Public Use
  Company Number: US-BRISTOL-MYERS SQUIBB COMPANY-20149183

PATIENT
  Age: 44 Year
  Sex: Female
  Weight: 52.15 kg

DRUGS (11)
  1. ABILIFY [Suspect]
     Indication: MAJOR DEPRESSION
     Route: 048
     Dates: start: 2008
  2. PERCOCET [Concomitant]
     Indication: SPINAL PAIN
  3. FIORICET [Concomitant]
     Indication: SPINAL DISORDER
  4. ADDERALL [Concomitant]
     Indication: THYROID DISORDER
  5. LYRICA [Concomitant]
  6. LAMICTAL [Concomitant]
  7. CYMBALTA [Concomitant]
  8. PROTONIX [Concomitant]
  9. MULTIPLE VITAMINS [Concomitant]
  10. MIRALAX [Concomitant]
  11. OXYCONTIN [Concomitant]

REACTIONS (7)
  - Skull fracture [Unknown]
  - Constipation [Unknown]
  - Depression [Unknown]
  - Convulsion [Unknown]
  - Fall [Unknown]
  - Gallbladder disorder [Unknown]
  - Weight increased [Unknown]
